FAERS Safety Report 4735540-9 (Version None)
Quarter: 2005Q3

REPORT INFORMATION
  Report Type: 
  Country: None (occurrence: None)
  Receive Date: 20050803
  Receipt Date: 20050707
  Transmission Date: 20060218
  Serious: Yes (Other)
  Sender: FDA-Public Use
  Company Number: US_000950325

PATIENT
  Age: 58 Year
  Sex: Female

DRUGS (12)
  1. HUMULIN N [Suspect]
     Indication: DIABETES MELLITUS
     Dates: start: 19990101
  2. HUMULIN R [Suspect]
     Indication: DIABETES MELLITUS
     Dates: start: 19990101, end: 20010101
  3. METFORMIN [Concomitant]
  4. NOVOLIN R [Concomitant]
  5. ISORBIDE (ISOSORBIDE DINITRATE) [Concomitant]
  6. METOPROLOL [Concomitant]
  7. GEMFIBROZIL [Concomitant]
  8. LISINOPRIL (LISINOPRIL /00894001/) [Concomitant]
  9. NIACIN [Concomitant]
  10. NEURONTIN [Concomitant]
  11. ASPIRIN [Concomitant]
  12. LANTUS [Concomitant]

REACTIONS (9)
  - BASAL CELL CARCINOMA [None]
  - CARDIAC DISORDER [None]
  - CARPAL TUNNEL SYNDROME [None]
  - DIABETES MELLITUS INADEQUATE CONTROL [None]
  - HYPERHIDROSIS [None]
  - INSULIN RESISTANCE [None]
  - MALAISE [None]
  - NERVE COMPRESSION [None]
  - WEIGHT INCREASED [None]
